FAERS Safety Report 8400019-X (Version None)
Quarter: 2012Q2

REPORT INFORMATION
  Report Type: 
  Country: None (occurrence: None)
  Receive Date: 20120531
  Receipt Date: 20120525
  Transmission Date: 20120825
  Serious: Yes (Hospitalization)
  Sender: FDA-Public Use
  Company Number: US-ROCHE-1073124

PATIENT
  Sex: Female
  Weight: 60.382 kg

DRUGS (5)
  1. OMALIZUMAB [Suspect]
     Indication: ASTHMA
     Route: 058
     Dates: start: 20110920
  2. ADVAIR DISKUS 100/50 [Concomitant]
  3. ALBUTEROL [Concomitant]
  4. SINGULAIR [Concomitant]
  5. VENTOLIN [Concomitant]

REACTIONS (1)
  - CEREBROVASCULAR ACCIDENT [None]
